FAERS Safety Report 4461160-X (Version None)
Quarter: 2004Q3

REPORT INFORMATION
  Report Type: 
  Country: None (occurrence: None)
  Receive Date: 20040924
  Receipt Date: 20040915
  Transmission Date: 20050211
  Serious: Yes (Hospitalization)
  Sender: FDA-Public Use
  Company Number: 2004UW16907

PATIENT
  Age: 72 Year
  Sex: Female

DRUGS (5)
  1. CRESTOR [Suspect]
     Dosage: 10 MG DAILY PO
     Route: 048
     Dates: start: 20040711, end: 20040727
  2. TOPROL-XL [Concomitant]
  3. PLAVIX [Concomitant]
  4. ASPIRIN [Concomitant]
  5. LOVENOX [Concomitant]

REACTIONS (7)
  - ALANINE AMINOTRANSFERASE INCREASED [None]
  - BLOOD THYROID STIMULATING HORMONE INCREASED [None]
  - DYSPNOEA [None]
  - HYPOXIA [None]
  - NEUROMYOPATHY [None]
  - POLYMYOSITIS [None]
  - URINARY TRACT INFECTION [None]
